FAERS Safety Report 7208421-9 (Version None)
Quarter: 2011Q1

REPORT INFORMATION
  Report Type: 
  Country: None (occurrence: None)
  Receive Date: 20110104
  Receipt Date: 20101221
  Transmission Date: 20110831
  Serious: Yes (Other)
  Sender: FDA-Public Use
  Company Number: SI-ELI_LILLY_AND_COMPANY-SI201012005065

PATIENT
  Age: 77 Year
  Sex: Male

DRUGS (2)
  1. GEMCITABINE HCL [Suspect]
     Indication: BLADDER CANCER
     Dosage: 1000 MG/M2, OTHER (ON DAYS 1 EVERU THREE WEEKS)
     Route: 065
     Dates: start: 20090501, end: 20090801
  2. CISPLATIN [Concomitant]
     Indication: BLADDER CANCER
     Dosage: 75 MG/M2, OTHER (ON DAY 1 EVERY 3 WEEKS)
     Route: 065
     Dates: start: 20090501, end: 20090801

REACTIONS (3)
  - EXTREMITY NECROSIS [None]
  - THROMBOCYTOSIS [None]
  - PERIPHERAL ISCHAEMIA [None]
